FAERS Safety Report 8286725-9 (Version None)
Quarter: 2012Q2

REPORT INFORMATION
  Report Type: 
  Country: None (occurrence: None)
  Receive Date: 20120416
  Receipt Date: 20120402
  Transmission Date: 20120825
  Serious: Yes (Other)
  Sender: FDA-Public Use
  Company Number: US-SANOFI-AVENTIS-2012SA023449

PATIENT
  Age: 78 Year
  Sex: Female

DRUGS (3)
  1. ALLEGRA [Suspect]
     Route: 048
  2. METOPROLOL TARTRATE [Suspect]
     Indication: BLOOD PRESSURE
  3. ALLEGRA [Suspect]
     Route: 048

REACTIONS (5)
  - HEART RATE INCREASED [None]
  - AGITATION [None]
  - HALLUCINATION [None]
  - INSOMNIA [None]
  - NERVOUSNESS [None]
